FAERS Safety Report 20846831 (Version 3)
Quarter: 2022Q3

REPORT INFORMATION
  Report Type: Report from Study
  Country: EG (occurrence: None)
  Receive Date: 20220519
  Receipt Date: 20220715
  Transmission Date: 20221026
  Serious: Yes (Other)
  Sender: FDA-Public Use
  Company Number: EG-Merck Healthcare KGaA-9320936

PATIENT
  Age: 24 Year
  Sex: Female

DRUGS (3)
  1. REBIF [Suspect]
     Active Substance: INTERFERON BETA-1A
     Indication: Multiple sclerosis
     Route: 058
     Dates: start: 20210202
  2. PICOLAX [SODIUM PICOSULFATE] [Concomitant]
     Indication: Product used for unknown indication
  3. PROGEST [Concomitant]
     Indication: Product used for unknown indication

REACTIONS (5)
  - Haemorrhage in pregnancy [Recovered/Resolved]
  - Vaginal discharge [Recovered/Resolved]
  - Fatigue [Unknown]
  - Treatment noncompliance [Not Recovered/Not Resolved]
  - Maternal exposure during pregnancy [Not Recovered/Not Resolved]

NARRATIVE: CASE EVENT DATE: 20220101
